FAERS Safety Report 16243909 (Version 2)
Quarter: 2019Q2

REPORT INFORMATION
  Report Type: Spontaneous
  Country: US (occurrence: US)
  Receive Date: 20190426
  Receipt Date: 20190513
  Transmission Date: 20190711
  Serious: No
  Sender: FDA-Public Use
  Company Number: US-TEVA-2019-US-1039869

PATIENT
  Sex: Female

DRUGS (1)
  1. TEVA LAMOTRIGINE [Suspect]
     Active Substance: LAMOTRIGINE
     Indication: BIPOLAR DISORDER
     Dosage: 150 MILLIGRAM DAILY;
     Route: 065
     Dates: start: 20190327

REACTIONS (6)
  - Panic attack [Unknown]
  - Balance disorder [Unknown]
  - Insomnia [Unknown]
  - Palpitations [Unknown]
  - Gait disturbance [Unknown]
  - Feeling abnormal [Unknown]

NARRATIVE: CASE EVENT DATE: 20190327
